FAERS Safety Report 21596133 (Version 1)
Quarter: 2022Q4

REPORT INFORMATION
  Report Type: Spontaneous
  Country: BR (occurrence: BR)
  Receive Date: 20221115
  Receipt Date: 20221115
  Transmission Date: 20230113
  Serious: Yes (Other)
  Sender: FDA-Public Use
  Company Number: BR-CELLTRION INC.-2022BR016631

PATIENT

DRUGS (1)
  1. INFLIXIMAB [Suspect]
     Active Substance: INFLIXIMAB
     Indication: Psoriatic arthropathy
     Dosage: 4 AMPOLES, EVERY 8 WEEKS
     Route: 042

REACTIONS (4)
  - Arthralgia [Unknown]
  - Treatment delayed [Unknown]
  - Suspected product quality issue [Unknown]
  - Product storage error [Unknown]
